FAERS Safety Report 20103105 (Version 1)
Quarter: 2021Q4

REPORT INFORMATION
  Report Type: Spontaneous
  Country: US (occurrence: US)
  Receive Date: 20211123
  Receipt Date: 20211123
  Transmission Date: 20220304
  Serious: No
  Sender: FDA-Public Use
  Company Number: US-REDHILL BIOPHARMA-2021RDH00173

PATIENT
  Sex: Male
  Weight: 89.796 kg

DRUGS (1)
  1. TALICIA [Suspect]
     Active Substance: AMOXICILLIN\OMEPRAZOLE MAGNESIUM\RIFABUTIN
     Indication: Helicobacter infection
     Dosage: 4 CAPSULES, 3X/DAY
     Route: 048
     Dates: start: 20210926, end: 20210927

REACTIONS (4)
  - Genital hypoaesthesia [Recovered/Resolved]
  - Genital burning sensation [Recovered/Resolved]
  - Dyspnoea [Recovered/Resolved]
  - Contraindicated product administered [Recovered/Resolved]

NARRATIVE: CASE EVENT DATE: 20210926
